FAERS Safety Report 6743082-4 (Version None)
Quarter: 2010Q2

REPORT INFORMATION
  Report Type: 
  Country: None (occurrence: None)
  Receive Date: 20100527
  Receipt Date: 20100517
  Transmission Date: 20101027
  Serious: Yes (Hospitalization)
  Sender: FDA-Public Use
  Company Number: TW-KINGPHARMUSA00001-K201000599

PATIENT
  Age: 69 Year
  Sex: Male
  Weight: 39 kg

DRUGS (3)
  1. TAPAZOLE [Suspect]
     Indication: BASEDOW'S DISEASE
     Dosage: 30 MG, QD
  2. TAPAZOLE [Suspect]
     Indication: HYPERTHYROIDISM
     Dosage: 20 MG, QD
  3. PROPRANOLOL [Concomitant]
     Dosage: 10 MG, TID

REACTIONS (10)
  - ALANINE AMINOTRANSFERASE INCREASED [None]
  - ASPARTATE AMINOTRANSFERASE INCREASED [None]
  - BLOOD BILIRUBIN INCREASED [None]
  - CHOLECYSTITIS ACUTE [None]
  - CHOLESTASIS [None]
  - ESCHERICHIA BACTERAEMIA [None]
  - FATIGUE [None]
  - LEUKOCYTOSIS [None]
  - OCULAR ICTERUS [None]
  - PYREXIA [None]
